FAERS Safety Report 10240232 (Version 2)
Quarter: 2014Q2

REPORT INFORMATION
  Report Type: Spontaneous
  Country: US (occurrence: US)
  Receive Date: 20140617
  Receipt Date: 20140619
  Transmission Date: 20141212
  Serious: Yes (Other)
  Sender: FDA-Public Use
  Company Number: CHPA2014US007971

PATIENT
  Age: 67 Year
  Sex: Female

DRUGS (7)
  1. VOLTAREN GEL [Suspect]
     Indication: NEUROPATHY PERIPHERAL
     Dosage: UNK
     Route: 061
     Dates: start: 20140607, end: 20140607
  2. VOLTAREN GEL [Suspect]
     Indication: OFF LABEL USE
     Dosage: 2 G, UNK
     Route: 061
     Dates: start: 201305
  3. VOLTAREN GEL [Suspect]
     Indication: OSTEOARTHRITIS
  4. VOLTAREN GEL [Suspect]
     Indication: CARPAL TUNNEL SYNDROME
  5. VOLTAREN GEL [Suspect]
     Indication: OFF LABEL USE
  6. VOLTAREN GEL [Suspect]
     Indication: PAIN IN EXTREMITY
  7. VOLTAREN GEL [Suspect]
     Indication: OFF LABEL USE

REACTIONS (7)
  - Renal impairment [Not Recovered/Not Resolved]
  - Scoliosis [Unknown]
  - Walking disability [Not Recovered/Not Resolved]
  - Arthropathy [Unknown]
  - Wrong technique in drug usage process [Unknown]
  - Drug ineffective for unapproved indication [Unknown]
  - Therapeutic response changed [Unknown]
